FAERS Safety Report 5949982-7 (Version None)
Quarter: 2008Q4

REPORT INFORMATION
  Report Type: 
  Country: None (occurrence: None)
  Receive Date: 20081112
  Receipt Date: 20081105
  Transmission Date: 20090506
  Serious: Yes (Hospitalization)
  Sender: FDA-Public Use
  Company Number: US-GILEAD-2008-0018437

PATIENT
  Sex: Female
  Weight: 77.634 kg

DRUGS (14)
  1. LETAIRIS [Suspect]
     Indication: PULMONARY ARTERIAL HYPERTENSION
     Route: 048
     Dates: start: 20080601, end: 20081001
  2. LETAIRIS [Suspect]
     Route: 048
     Dates: start: 20081001
  3. WARFARIN SODIUM [Concomitant]
  4. PANTOPRAZOLE SODIUM [Concomitant]
  5. POTASSIUM CHLORIDE [Concomitant]
  6. LASIX [Concomitant]
  7. NORVASC [Concomitant]
  8. COREG [Concomitant]
  9. ASPIRIN [Concomitant]
  10. LANTUS [Concomitant]
  11. NOVOLOG [Concomitant]
  12. ALDACTONE [Concomitant]
  13. NIFEREX [Concomitant]
  14. SYNTHROID [Concomitant]

REACTIONS (2)
  - ASCITES [None]
  - RIGHT VENTRICULAR FAILURE [None]
